FAERS Safety Report 6923968-8 (Version None)
Quarter: 2010Q3

REPORT INFORMATION
  Report Type: 
  Country: None (occurrence: None)
  Receive Date: 20100813
  Receipt Date: 20100804
  Transmission Date: 20110219
  Serious: Yes (Hospitalization, Other)
  Sender: FDA-Public Use
  Company Number: DE-ELI_LILLY_AND_COMPANY-DE201008001319

PATIENT
  Age: 59 Year
  Sex: Female

DRUGS (7)
  1. CYMBALTA [Suspect]
     Indication: PAIN
     Dosage: 60 MG, UNKNOWN
     Route: 048
     Dates: start: 20100518, end: 20100601
  2. L-THYROX [Concomitant]
  3. DELIX [Concomitant]
  4. OXYGESIC [Concomitant]
  5. PANTOZOL [Concomitant]
  6. ALENDRONIC ACID [Concomitant]
  7. CALCIUM [Concomitant]

REACTIONS (3)
  - OFF LABEL USE [None]
  - VASCULITIS [None]
  - VASCULITIS NECROTISING [None]
